FAERS Safety Report 22308171 (Version 2)
Quarter: 2023Q2

REPORT INFORMATION
  Report Type: Spontaneous
  Country: CH (occurrence: JP)
  Receive Date: 20230511
  Receipt Date: 20230511
  Transmission Date: 20230721
  Serious: Yes (Death, Other)
  Sender: FDA-Public Use
  Company Number: JP-PFIZER INC-PV202300080514

PATIENT
  Age: 64 Year
  Sex: Male

DRUGS (2)
  1. HEPARIN SODIUM [Suspect]
     Active Substance: HEPARIN SODIUM
     Indication: Haemodialysis
     Dosage: UNK (CONTINUOUS INFUSION AT 1000 UNITS/H)
     Route: 042
  2. HEPARIN SODIUM [Suspect]
     Active Substance: HEPARIN SODIUM
     Indication: Anticoagulant therapy

REACTIONS (5)
  - Anaphylactoid reaction [Fatal]
  - Cardio-respiratory arrest [Fatal]
  - Coronary artery occlusion [Fatal]
  - Pulmonary embolism [Fatal]
  - Atrial tachycardia [Fatal]
